FAERS Safety Report 19889409 (Version 1)
Quarter: 2021Q3

REPORT INFORMATION
  Report Type: Spontaneous
  Country: US (occurrence: US)
  Receive Date: 20210928
  Receipt Date: 20210928
  Transmission Date: 20211014
  Serious: Yes (Other)
  Sender: FDA-Public Use
  Company Number: None

PATIENT
  Sex: Female

DRUGS (1)
  1. SERTRALINE 50MG [Suspect]
     Active Substance: SERTRALINE HYDROCHLORIDE

REACTIONS (4)
  - Throat irritation [None]
  - Nausea [None]
  - Nasopharyngitis [None]
  - Dyspepsia [None]

NARRATIVE: CASE EVENT DATE: 20210927
